FAERS Safety Report 24701311 (Version 1)
Quarter: 2024Q4

REPORT INFORMATION
  Report Type: Spontaneous
  Country: IN (occurrence: IN)
  Receive Date: 20241205
  Receipt Date: 20241205
  Transmission Date: 20250115
  Serious: Yes (Death)
  Sender: PFIZER
  Company Number: IN-PFIZER INC-PV202400106202

PATIENT
  Age: 57 Year
  Sex: Female

DRUGS (2)
  1. CRIZOTINIB [Suspect]
     Active Substance: CRIZOTINIB
     Indication: Lung squamous cell carcinoma stage IV
     Dosage: 250 MG, 2X/DAY (1-0-1)
     Route: 048
     Dates: start: 202310, end: 202408
  2. LORLATINIB [Suspect]
     Active Substance: LORLATINIB
     Indication: Lung squamous cell carcinoma stage IV
     Dosage: 100 MG, 1X/DAY (1-0-0)

REACTIONS (2)
  - Death [Fatal]
  - Off label use [Unknown]
